FAERS Safety Report 9886021 (Version 2)
Quarter: 2014Q1

REPORT INFORMATION
  Report Type: Spontaneous
  Country: IT (occurrence: IT)
  Receive Date: 20140210
  Receipt Date: 20140219
  Transmission Date: 20141002
  Serious: Yes (Hospitalization)
  Sender: FDA-Public Use
  Company Number: IT-GLAXOSMITHKLINE-B0967745A

PATIENT
  Age: 47 Year
  Sex: Male

DRUGS (4)
  1. ORAXIM [Suspect]
     Indication: DRUG ABUSE
     Route: 048
     Dates: start: 20140123
  2. DEPAKIN CHRONO [Suspect]
     Indication: DRUG ABUSE
     Dates: start: 20140123
  3. LYRICA [Suspect]
     Indication: DRUG ABUSE
     Dates: start: 20140123
  4. NOZINAN [Suspect]
     Indication: DRUG ABUSE
     Dates: start: 20140123

REACTIONS (2)
  - Somnolence [Recovered/Resolved]
  - Drug abuse [Unknown]
